FAERS Safety Report 17563006 (Version 1)
Quarter: 2020Q1

REPORT INFORMATION
  Report Type: Report from Study
  Country: US (occurrence: US)
  Receive Date: 20200319
  Receipt Date: 20200319
  Transmission Date: 20200409
  Serious: Yes (Other)
  Sender: FDA-Public Use
  Company Number: NVSC2020US077353

PATIENT
  Age: 65 Year
  Sex: Female

DRUGS (2)
  1. KYMRIAH [Suspect]
     Active Substance: TISAGENLECLEUCEL
     Indication: NON-HODGKIN^S LYMPHOMA
     Dosage: UNK
     Route: 065
  2. KYMRIAH [Suspect]
     Active Substance: TISAGENLECLEUCEL
     Indication: DIFFUSE LARGE B-CELL LYMPHOMA

REACTIONS (8)
  - Headache [Unknown]
  - Pyrexia [Recovered/Resolved]
  - Hypogammaglobulinaemia [Unknown]
  - Hypotension [Unknown]
  - Cytokine release syndrome [Recovered/Resolved]
  - White blood cell count increased [Unknown]
  - Haematocrit decreased [Unknown]
  - Neurotoxicity [Recovered/Resolved]
